FAERS Safety Report 8572271-1 (Version None)
Quarter: 2012Q3

REPORT INFORMATION
  Report Type: 
  Country: None (occurrence: None)
  Receive Date: 20120806
  Receipt Date: 20120723
  Transmission Date: 20120928
  Serious: Yes (Other)
  Sender: FDA-Public Use
  Company Number: US-MYLANLABS-2012S1015690

PATIENT
  Age: 37 Year
  Sex: Male

DRUGS (1)
  1. WARFARIN SODIUM [Suspect]
     Indication: THROMBOSIS PROPHYLAXIS
     Route: 065

REACTIONS (3)
  - MELAENA [None]
  - HAEMATEMESIS [None]
  - INTERNATIONAL NORMALISED RATIO INCREASED [None]
